FAERS Safety Report 14315098 (Version 11)
Quarter: 2018Q4

REPORT INFORMATION
  Report Type: Report from Study
  Country: DE (occurrence: DE)
  Receive Date: 20171221
  Receipt Date: 20181003
  Transmission Date: 20190204
  Serious: Yes (Hospitalization, Other)
  Sender: FDA-Public Use
  Company Number: DE-TEVA-2017-DE-833969

PATIENT
  Age: 82 Year
  Sex: Female
  Weight: 74 kg

DRUGS (9)
  1. IRINOTECAN SOLUTION FOR INFUSION [Suspect]
     Active Substance: IRINOTECAN
     Indication: COLORECTAL CANCER METASTATIC
     Dosage: 290 MG, UNK
     Route: 065
     Dates: start: 20171012
  2. FOLINIC ACID [Suspect]
     Active Substance: LEUCOVORIN
     Indication: COLORECTAL CANCER METASTATIC
     Dosage: 648-650 MG, UNK
     Route: 065
     Dates: start: 20171012
  3. IRINOTECAN SOLUTION FOR INFUSION [Suspect]
     Active Substance: IRINOTECAN
     Indication: OFF LABEL USE
  4. FLUOROURACIL. [Suspect]
     Active Substance: FLUOROURACIL
     Indication: COLORECTAL CANCER METASTATIC
     Dosage: 3890-3900 MG, UNK
     Route: 042
     Dates: start: 20171012
  5. DOXYCYCLINE HYDROCHLORIDE [Concomitant]
     Active Substance: DOXYCYCLINE HYDROCHLORIDE
     Indication: ACNE
  6. PANITUMUMAB [Suspect]
     Active Substance: PANITUMUMAB
     Indication: COLORECTAL CANCER METASTATIC
     Dosage: 420 MG, UNK
     Route: 042
     Dates: start: 20171012
  7. PEGYLATED LIPOSOMAL IRINOTECAN [Suspect]
     Active Substance: IRINOTECAN HYDROCHLORIDE
     Indication: OFF LABEL USE
     Dosage: 290 MG, UNK
     Dates: start: 20171012
  8. FLUOROURACIL. [Suspect]
     Active Substance: FLUOROURACIL
     Dosage: 648-650 MG, UNK
     Route: 040
     Dates: start: 20171012
  9. DOXYCYCLINE HYDROCHLORIDE [Concomitant]
     Active Substance: DOXYCYCLINE HYDROCHLORIDE
     Indication: PROPHYLAXIS
     Dosage: 200 MILLIGRAM DAILY;
     Route: 048
     Dates: start: 20171012

REACTIONS (3)
  - Off label use [Unknown]
  - Leukopenia [Recovering/Resolving]
  - Diarrhoea [Not Recovered/Not Resolved]

NARRATIVE: CASE EVENT DATE: 20171026
